FAERS Safety Report 6071944-2 (Version None)
Quarter: 2009Q1

REPORT INFORMATION
  Report Type: 
  Country: None (occurrence: None)
  Receive Date: 20090202
  Receipt Date: 20090121
  Transmission Date: 20090719
  Serious: Yes (Hospitalization)
  Sender: FDA-Public Use
  Company Number: WSDF_00756

PATIENT
  Age: 65 Year
  Sex: Male
  Weight: 81.8 kg

DRUGS (11)
  1. WINRHO [Suspect]
     Indication: IDIOPATHIC THROMBOCYTOPENIC PURPURA
     Dosage: 51.2 UG/KG ONCE IV
     Route: 042
     Dates: start: 20080926, end: 20080926
  2. WINRHO [Suspect]
     Indication: IDIOPATHIC THROMBOCYTOPENIC PURPURA
     Dates: start: 20080926, end: 20080926
  3. PREDNISONE [Concomitant]
  4. PLAQUENIL [Concomitant]
  5. LEVOXYL [Concomitant]
  6. OS-CAL /00108001/ [Concomitant]
  7. ZESTRIL [Concomitant]
  8. CLARITIN /00917501/ [Concomitant]
  9. RITUXAN [Concomitant]
  10. ZOSYN [Concomitant]
  11. LEVAQUIN [Concomitant]

REACTIONS (19)
  - ASTHENIA [None]
  - ATELECTASIS [None]
  - BACTERIA URINE [None]
  - BLOOD LACTATE DEHYDROGENASE INCREASED [None]
  - BLOOD UREA INCREASED [None]
  - HAEMOGLOBIN DECREASED [None]
  - HAEMOLYSIS [None]
  - HEADACHE [None]
  - HYPERTENSION [None]
  - JAUNDICE [None]
  - LUNG INFILTRATION [None]
  - MUSCULOSKELETAL DISCOMFORT [None]
  - NEUTROPHIL COUNT INCREASED [None]
  - PNEUMONIA [None]
  - POIKILOCYTOSIS [None]
  - PROTEIN URINE PRESENT [None]
  - RED BLOOD CELL SPHEROCYTES PRESENT [None]
  - URINE KETONE BODY PRESENT [None]
  - WHITE BLOOD CELLS URINE POSITIVE [None]
